FAERS Safety Report 20540650 (Version 1)
Quarter: 2022Q1

REPORT INFORMATION
  Report Type: Spontaneous
  Country: ID (occurrence: ID)
  Receive Date: 20220302
  Receipt Date: 20220302
  Transmission Date: 20220423
  Serious: Yes (Other)
  Sender: FDA-Public Use
  Company Number: ID-JNJFOC-20211134120

PATIENT
  Age: 60 Year
  Sex: Male
  Weight: 40 kg

DRUGS (9)
  1. SIRTURO [Suspect]
     Active Substance: BEDAQUILINE FUMARATE
     Indication: Tuberculosis
     Dosage: 400
     Route: 048
  2. LEVOFLOXACIN [Suspect]
     Active Substance: LEVOFLOXACIN
     Indication: Tuberculosis
     Dosage: 750
     Route: 065
  3. CLOFAZIMINE [Suspect]
     Active Substance: CLOFAZIMINE
     Indication: Tuberculosis
     Dosage: 100
     Route: 065
  4. ETHIONAMIDE [Suspect]
     Active Substance: ETHIONAMIDE
     Indication: Tuberculosis
     Dosage: 500
     Route: 065
  5. ISONIAZID\RIFAMPIN [Suspect]
     Active Substance: ISONIAZID\RIFAMPIN
     Indication: Tuberculosis
     Dosage: 450
     Route: 065
  6. PYRAZINAMIDE [Suspect]
     Active Substance: PYRAZINAMIDE
     Indication: Tuberculosis
     Dosage: 1500
     Route: 065
  7. ETHAMBUTOL [Suspect]
     Active Substance: ETHAMBUTOL HYDROCHLORIDE
     Indication: Tuberculosis
     Dosage: 800
     Route: 065
  8. LINEZOLID [Suspect]
     Active Substance: LINEZOLID
     Indication: Tuberculosis
     Dosage: 450
     Route: 065
  9. CYCLOSERINE [Suspect]
     Active Substance: CYCLOSERINE
     Indication: Tuberculosis
     Dosage: 500
     Route: 065

REACTIONS (1)
  - Seizure [Unknown]
